FAERS Safety Report 4367927-0 (Version None)
Quarter: 2004Q2

REPORT INFORMATION
  Report Type: 
  Country: None (occurrence: None)
  Receive Date: 20040602
  Receipt Date: 20030818
  Transmission Date: 20050107
  Serious: Yes (Other)
  Sender: FDA-Public Use
  Company Number: PHEH2003US07737

PATIENT
  Age: 68 Year
  Sex: Female

DRUGS (19)
  1. PROCRIT [Concomitant]
     Indication: ANAEMIA
  2. ZANTAC [Concomitant]
  3. TAMOXIFEN CITRATE [Concomitant]
     Dosage: 20 MG, QD
     Dates: start: 19970501, end: 20020412
  4. XELODA [Concomitant]
     Dosage: 1000 MG, BID
     Dates: start: 20020312, end: 20030730
  5. ARIMIDEX [Concomitant]
     Dosage: 1 MG, UNK
  6. TAXOL [Concomitant]
     Dosage: 110MG/ Q3WEEKS
     Dates: start: 20000824, end: 20001222
  7. TAXOTERE [Concomitant]
     Dosage: 55 MG, QW
     Dates: start: 20001222, end: 20020226
  8. EPIRUBICIN [Concomitant]
     Dosage: 40 MG, QW
     Dates: start: 20030820, end: 20031203
  9. GEMZAR [Concomitant]
     Dosage: 1000 MG, QW
     Dates: start: 20031210
  10. GEMZAR [Concomitant]
     Dosage: 1000 MG/QOW
     Dates: end: 20040304
  11. NAVELBINE [Concomitant]
     Dosage: 40 MG, QW
     Dates: start: 20030324
  12. IRON [Concomitant]
  13. CALCIUM [Concomitant]
  14. VITAMIN D [Concomitant]
  15. HYDROCODONE [Concomitant]
     Indication: SCIATICA
     Dosage: 10 MG, TID
  16. RADIOTHERAPY [Concomitant]
     Dosage: UNK, UNK
     Dates: start: 20020304, end: 20020528
  17. AREDIA [Suspect]
     Dosage: 90 MG, QMO
     Dates: start: 19970721, end: 20020226
  18. AREDIA [Suspect]
     Dosage: 90 MG, QMO
     Dates: start: 20030901
  19. ZOMETA [Suspect]
     Dosage: 4 MG, QMO
     Dates: start: 20020326, end: 20030901

REACTIONS (13)
  - BONE DISORDER [None]
  - BREATH ODOUR [None]
  - BREATH SOUNDS DECREASED [None]
  - DENTAL OPERATION [None]
  - EYELID PTOSIS [None]
  - GINGIVAL DISORDER [None]
  - INFECTION [None]
  - JAW DISORDER [None]
  - METASTATIC NEOPLASM [None]
  - PLEURAL EFFUSION [None]
  - SINUS DISORDER [None]
  - SWELLING FACE [None]
  - WEIGHT DECREASED [None]
